FAERS Safety Report 5402699-X (Version None)
Quarter: 2007Q3

REPORT INFORMATION
  Report Type: 
  Country: None (occurrence: None)
  Receive Date: 20070801
  Receipt Date: 20070725
  Transmission Date: 20080115
  Serious: Yes (Death, Life-Threatening, Hospitalization)
  Sender: FDA-Public Use
  Company Number: B0480587A

PATIENT
  Age: 76 Year
  Sex: Male

DRUGS (6)
  1. ARIXTRA [Suspect]
     Indication: DEEP VEIN THROMBOSIS
     Dosage: 7.5MG PER DAY
     Route: 058
     Dates: start: 20060918, end: 20060924
  2. PREVISCAN [Suspect]
     Route: 048
     Dates: start: 20060829, end: 20060918
  3. KARDEGIC [Suspect]
     Dosage: 75MG PER DAY
     Route: 048
     Dates: start: 20060907, end: 20060918
  4. ASPEGIC 325 [Suspect]
     Route: 048
     Dates: start: 20060826, end: 20060905
  5. PERFALGAN [Concomitant]
     Route: 042
  6. GEMCITABINE HCL [Concomitant]
     Dates: start: 20060401

REACTIONS (8)
  - ANAEMIA [None]
  - ARTHRALGIA [None]
  - BLOOD UREA INCREASED [None]
  - DEEP VEIN THROMBOSIS [None]
  - GENERAL PHYSICAL HEALTH DETERIORATION [None]
  - INCISION SITE HAEMORRHAGE [None]
  - PAIN IN EXTREMITY [None]
  - THROMBOCYTOPENIA [None]
